FAERS Safety Report 14027395 (Version 1)
Quarter: 2017Q3

REPORT INFORMATION
  Report Type: Report from Study
  Country: US (occurrence: US)
  Receive Date: 20170929
  Receipt Date: 20170929
  Transmission Date: 20171128
  Serious: Yes (Hospitalization)
  Sender: FDA-Public Use
  Company Number: PHEH2017US031232

PATIENT
  Sex: Female

DRUGS (1)
  1. ENTRESTO [Suspect]
     Active Substance: SACUBITRIL\VALSARTAN
     Indication: CARDIAC FAILURE
     Dosage: 50 MG (24MG OF SACUBITRIL AND 26MG OF VALSARTAN), UNK
     Route: 048

REACTIONS (6)
  - Muscular weakness [Unknown]
  - Dyspnoea [Unknown]
  - Chest discomfort [Unknown]
  - Vision blurred [Unknown]
  - Heart rate decreased [Unknown]
  - Musculoskeletal disorder [Unknown]
